FAERS Safety Report 19404950 (Version 1)
Quarter: 2021Q2

REPORT INFORMATION
  Report Type: Report from Study
  Country: US (occurrence: US)
  Receive Date: 20210611
  Receipt Date: 20210611
  Transmission Date: 20210717
  Serious: Yes (Hospitalization, Other)
  Sender: FDA-Public Use
  Company Number: US-SNT-000090

PATIENT
  Age: 16 Year
  Sex: Female

DRUGS (1)
  1. BUPROPION. [Suspect]
     Active Substance: BUPROPION
     Indication: PRODUCT USED FOR UNKNOWN INDICATION
     Dosage: XL
     Route: 065

REACTIONS (7)
  - Tachycardia [Unknown]
  - Cardiac arrest [Unknown]
  - Lung assist device therapy [Unknown]
  - Mechanical ventilation [Unknown]
  - Seizure [Unknown]
  - Endotracheal intubation [Unknown]
  - Overdose [Unknown]
